FAERS Safety Report 17088533 (Version 13)
Quarter: 2020Q4

REPORT INFORMATION
  Report Type: Spontaneous
  Country: PT (occurrence: PT)
  Receive Date: 20191128
  Receipt Date: 20201126
  Transmission Date: 20210113
  Serious: Yes (Hospitalization, Other)
  Sender: FDA-Public Use
  Company Number: NVSC2019PT049136

PATIENT
  Age: 69 Year
  Sex: Male

DRUGS (7)
  1. SITAGLIPTIN METFORMIN [Suspect]
     Active Substance: METFORMIN HYDROCHLORIDE\SITAGLIPTIN PHOSPHATE
     Indication: TYPE 2 DIABETES MELLITUS
     Dosage: UNK
     Route: 048
  2. LINAGLIPTINA [Concomitant]
     Active Substance: LINAGLIPTIN
     Indication: TYPE 2 DIABETES MELLITUS
     Dosage: UNK
     Route: 065
  3. OLMESARTAN MEDOXOMIL. [Suspect]
     Active Substance: OLMESARTAN MEDOXOMIL
     Indication: HYPERTENSION
  4. LERCANIDIPINE [Suspect]
     Active Substance: LERCANIDIPINE
     Indication: ESSENTIAL HYPERTENSION
     Dosage: UNK
     Route: 048
  5. OLMESARTAN MEDOXOMIL. [Suspect]
     Active Substance: OLMESARTAN MEDOXOMIL
     Indication: ESSENTIAL HYPERTENSION
     Dosage: UNK, AT A LOWER DOSE TABLET
     Route: 048
  6. ACETYLSALICYLIC ACID [Suspect]
     Active Substance: ASPIRIN
     Indication: PRODUCT USED FOR UNKNOWN INDICATION
     Dosage: UNK
     Route: 048
  7. ASPIRIN. [Concomitant]
     Active Substance: ASPIRIN
     Indication: PRODUCT USED FOR UNKNOWN INDICATION
     Dosage: UNK
     Route: 048

REACTIONS (8)
  - Blood urea increased [Recovered/Resolved]
  - Diarrhoea [Recovered/Resolved]
  - Hypercreatininaemia [Recovered/Resolved]
  - Hyperuricaemia [Recovered/Resolved]
  - Gastrointestinal disorder [Recovered/Resolved]
  - Duodenitis [Recovered/Resolved]
  - Blood creatinine increased [Recovered/Resolved]
  - Sprue-like enteropathy [Recovered/Resolved]
